FAERS Safety Report 25688388 (Version 1)
Quarter: 2025Q3

REPORT INFORMATION
  Report Type: Spontaneous
  Country: US (occurrence: US)
  Receive Date: 20250818
  Receipt Date: 20250818
  Transmission Date: 20251020
  Serious: No
  Sender: ROCHE
  Company Number: US-ROCHE-10000361340

PATIENT
  Age: 75 Year
  Sex: Male

DRUGS (3)
  1. TOCILIZUMAB [Suspect]
     Active Substance: TOCILIZUMAB
     Indication: VEXAS syndrome
     Route: 058
  2. TOCILIZUMAB [Suspect]
     Active Substance: TOCILIZUMAB
     Route: 058
  3. RUXOLITINIB [Concomitant]
     Active Substance: RUXOLITINIB
     Route: 048

REACTIONS (1)
  - Leukopenia [Unknown]
